FAERS Safety Report 11473456 (Version 1)
Quarter: 2015Q3

REPORT INFORMATION
  Report Type: Spontaneous
  Country: US (occurrence: None)
  Receive Date: 20150908
  Receipt Date: 20150908
  Transmission Date: 20151125
  Serious: Yes (Other)
  Sender: FDA-Public Use
  Company Number: None

PATIENT
  Age: 19 Year
  Sex: Male
  Weight: 90.72 kg

DRUGS (17)
  1. OXYCODONE/APAP [Suspect]
     Active Substance: ACETAMINOPHEN\OXYCODONE HYDROCHLORIDE
  2. DULOXETINE. [Concomitant]
     Active Substance: DULOXETINE
  3. METAXALONE. [Concomitant]
     Active Substance: METAXALONE
  4. ASPIRIN. [Concomitant]
     Active Substance: ASPIRIN
  5. OMEGA 3 FISHOIL [Concomitant]
  6. PERCOCET [Suspect]
     Active Substance: ACETAMINOPHEN\OXYCODONE HYDROCHLORIDE
     Indication: HEAD INJURY
     Dosage: 7.5-325 MG, BY MOUTH, 2 AT BEDTIME
     Dates: start: 20040701, end: 20150601
  7. LOSARTAN POTASSIUM. [Concomitant]
     Active Substance: LOSARTAN POTASSIUM
  8. PANTOPRAZOLE SODIUM. [Concomitant]
     Active Substance: PANTOPRAZOLE SODIUM
  9. KIRKLAND ACTIVE (23 VIT. + 19 MIN. PACK) [Concomitant]
  10. PERCOCET [Suspect]
     Active Substance: ACETAMINOPHEN\OXYCODONE HYDROCHLORIDE
     Indication: PROCEDURAL PAIN
     Dosage: 7.5-325 MG, BY MOUTH, 2 AT BEDTIME
     Dates: start: 20040701, end: 20150601
  11. SKELAXIN [Concomitant]
     Active Substance: METAXALONE
  12. ENDOCET [Suspect]
     Active Substance: ACETAMINOPHEN\OXYCODONE HYDROCHLORIDE
  13. LEVOTHYROXINE SODIUM. [Concomitant]
     Active Substance: LEVOTHYROXINE SODIUM
  14. GABAPENTIN (NEURONTIN) [Concomitant]
  15. COUNTRYLIFE CHELATE IRON [Concomitant]
  16. PERCOCET [Suspect]
     Active Substance: ACETAMINOPHEN\OXYCODONE HYDROCHLORIDE
     Indication: POST CONCUSSION SYNDROME
     Dosage: 7.5-325 MG, BY MOUTH, 2 AT BEDTIME
     Dates: start: 20040701, end: 20150601
  17. COUNTRYLIFE COQ10 [Concomitant]

REACTIONS (19)
  - Dry mouth [None]
  - Tremor [None]
  - Cough [None]
  - Dysphagia [None]
  - Hyperhidrosis [None]
  - Thirst [None]
  - Fatigue [None]
  - Asthenia [None]
  - Tooth erosion [None]
  - Tooth loss [None]
  - Blood calcium decreased [None]
  - Abnormal dreams [None]
  - Tooth fracture [None]
  - Nausea [None]
  - Teeth brittle [None]
  - Dizziness postural [None]
  - Feeling hot [None]
  - Somnolence [None]
  - Dyskinesia [None]

NARRATIVE: CASE EVENT DATE: 20150729
